FAERS Safety Report 13757222 (Version 1)
Quarter: 2017Q3

REPORT INFORMATION
  Report Type: Spontaneous
  Country: US (occurrence: US)
  Receive Date: 20170715
  Receipt Date: 20170715
  Transmission Date: 20171127
  Serious: Yes (Hospitalization)
  Sender: FDA-Public Use
  Company Number: None

PATIENT
  Age: 63 Year
  Sex: Female
  Weight: 49.5 kg

DRUGS (2)
  1. XANX [Concomitant]
  2. CIPROFLOXACIN. [Suspect]
     Active Substance: CIPROFLOXACIN
     Indication: APPENDICITIS PERFORATED
     Dosage: ?          OTHER STRENGTH:2 IV BAGS;QUANTITY:10 10;?
     Route: 058
     Dates: start: 19170310, end: 19170320

REACTIONS (11)
  - Arthralgia [None]
  - Chest pain [None]
  - Depression [None]
  - Suicidal ideation [None]
  - Head injury [None]
  - Panic attack [None]
  - Tendonitis [None]
  - Blood pressure decreased [None]
  - Anxiety [None]
  - Dizziness [None]
  - Fall [None]

NARRATIVE: CASE EVENT DATE: 19170310
